APPROVED DRUG PRODUCT: METOLAZONE
Active Ingredient: METOLAZONE
Strength: 5MG
Dosage Form/Route: TABLET;ORAL
Application: A214799 | Product #002 | TE Code: AB
Applicant: UNICHEM LABORATORIES LTD
Approved: Mar 30, 2021 | RLD: No | RS: No | Type: RX